FAERS Safety Report 9457529 (Version 1)
Quarter: 2013Q3

REPORT INFORMATION
  Report Type: Spontaneous
  Country: GB (occurrence: None)
  Receive Date: 20130812
  Receipt Date: 20130812
  Transmission Date: 20140515
  Serious: Yes (Hospitalization)
  Sender: FDA-Public Use
  Company Number: AG-2012-1998

PATIENT
  Age: 72 Year
  Sex: Female
  Weight: 91.8 kg

DRUGS (1)
  1. CHLORAMBUCIL [Suspect]
     Indication: CHRONIC LYMPHOCYTIC LEUKAEMIA
     Dosage: 10 MGM2 CYCLIC (10 MG/M2, DAYS 1-7/EVERY 28 DAYS),ORAL
     Route: 048
     Dates: start: 20110215

REACTIONS (1)
  - Endometrial adenocarcinoma [None]
